FAERS Safety Report 15592144 (Version 1)
Quarter: 2018Q4

REPORT INFORMATION
  Report Type: Report from Study
  Country: CA (occurrence: CA)
  Receive Date: 20181107
  Receipt Date: 20181107
  Transmission Date: 20190205
  Serious: Yes (Other)
  Sender: FDA-Public Use
  Company Number: PHHY2018CA149061

PATIENT
  Sex: Female

DRUGS (1)
  1. ACLASTA [Suspect]
     Active Substance: ZOLEDRONIC ACID
     Indication: OSTEOPOROSIS
     Dosage: 5 MG, UNK
     Route: 042

REACTIONS (12)
  - Basal cell carcinoma [Unknown]
  - Diverticulum [Unknown]
  - Bradycardia [Unknown]
  - Pulmonary mass [Unknown]
  - Road traffic accident [Unknown]
  - Intervertebral disc degeneration [Unknown]
  - Hypertension [Unknown]
  - Cataract [Unknown]
  - Blepharitis [Unknown]
  - Hypothyroidism [Unknown]
  - Low density lipoprotein decreased [Unknown]
  - Osteopenia [Unknown]

NARRATIVE: CASE EVENT DATE: 2011
